FAERS Safety Report 4661988-7 (Version None)
Quarter: 2005Q2

REPORT INFORMATION
  Report Type: 
  Country: None (occurrence: None)
  Receive Date: 20050512
  Receipt Date: 20050512
  Transmission Date: 20051028
  Serious: Yes (Other)
  Sender: FDA-Public Use
  Company Number: None

PATIENT
  Age: 64 Year
  Sex: Female
  Weight: 55.3388 kg

DRUGS (9)
  1. GENTAMICIN [Suspect]
     Indication: URINARY TRACT INFECTION
     Dosage: 80MG Q12H IV
     Route: 042
     Dates: start: 20050324, end: 20050331
  2. ZYPREXA [Concomitant]
  3. MULTIVITS [Concomitant]
  4. TRAZODONE [Concomitant]
  5. CALCIUM GLUCONATE [Concomitant]
  6. SYNTHROID [Concomitant]
  7. MAGNESIUM [Concomitant]
  8. GLUCOPHAGE [Concomitant]
  9. HEPARIN + SALINE FLUSH [Concomitant]

REACTIONS (2)
  - HEARING IMPAIRED [None]
  - OTOTOXICITY [None]
